FAERS Safety Report 18596943 (Version 2)
Quarter: 2020Q4

REPORT INFORMATION
  Report Type: Spontaneous
  Country: US (occurrence: US)
  Receive Date: 20201209
  Receipt Date: 20201211
  Transmission Date: 20210114
  Serious: Yes (Other)
  Sender: FDA-Public Use
  Company Number: US-TAKEDA-2020TUS055824

PATIENT
  Sex: Male
  Weight: 80 kg

DRUGS (13)
  1. ACETYLSALICYLIC ACID [Concomitant]
     Active Substance: ASPIRIN
     Dosage: UNK
     Route: 065
  2. CALCIUM + VITAMIN D [CALCIUM CITRATE;COLECALCIFEROL] [Concomitant]
     Dosage: UNK
     Route: 065
  3. COMPAZINE [Concomitant]
     Active Substance: PROCHLORPERAZINE MALEATE
     Dosage: UNK
     Route: 065
  4. ATORVASTATIN [Concomitant]
     Active Substance: ATORVASTATIN
     Dosage: UNK
     Route: 065
  5. ZOFRAN [Concomitant]
     Active Substance: ONDANSETRON HYDROCHLORIDE
     Dosage: UNK
     Route: 065
  6. VELCADE [Suspect]
     Active Substance: BORTEZOMIB
     Dosage: 1 MILLIGRAM/SQ. METER, Q2WEEKS
     Route: 065
  7. TAMSULOSIN [Concomitant]
     Active Substance: TAMSULOSIN
     Dosage: UNK
     Route: 065
  8. SERTRALINE [Concomitant]
     Active Substance: SERTRALINE HYDROCHLORIDE
     Dosage: UNK
     Route: 065
  9. POTASSIUM CHLORIDE. [Concomitant]
     Active Substance: POTASSIUM CHLORIDE
     Dosage: UNK
     Route: 065
  10. VELCADE [Suspect]
     Active Substance: BORTEZOMIB
     Indication: PLASMA CELL MYELOMA
     Dosage: 2 MILLIGRAM
     Route: 065
     Dates: start: 20200316
  11. VELCADE [Suspect]
     Active Substance: BORTEZOMIB
     Dosage: 2 MILLIGRAM, Q2WEEKS
     Route: 065
  12. NORVASC [Concomitant]
     Active Substance: AMLODIPINE BESYLATE
     Dosage: UNK
     Route: 065
  13. ELIQUIS [Concomitant]
     Active Substance: APIXABAN
     Dosage: UNK
     Route: 065

REACTIONS (1)
  - Plasma cell myeloma [Unknown]
